FAERS Safety Report 5709726-0 (Version None)
Quarter: 2008Q2

REPORT INFORMATION
  Report Type: 
  Country: None (occurrence: None)
  Receive Date: 20080418
  Receipt Date: 20070508
  Transmission Date: 20081010
  Serious: No
  Sender: FDA-Public Use
  Company Number: US-ASTRAZENECA-2007UW11051

PATIENT
  Sex: Male

DRUGS (1)
  1. CASODEX [Suspect]
     Route: 048

REACTIONS (1)
  - NIPPLE PAIN [None]
